FAERS Safety Report 8348133-1 (Version None)
Quarter: 2012Q2

REPORT INFORMATION
  Report Type: 
  Country: None (occurrence: None)
  Receive Date: 20120509
  Receipt Date: 20100708
  Transmission Date: 20120825
  Serious: No
  Sender: FDA-Public Use
  Company Number: US-TEVA-2010003691

PATIENT
  Sex: Male

DRUGS (8)
  1. NUVIGIL [Suspect]
     Indication: SLEEP APNOEA SYNDROME
     Dosage: 250 MILLIGRAM;
     Route: 048
     Dates: start: 20100701
  2. ACTOS [Concomitant]
     Indication: DIABETES MELLITUS
  3. SEROQUEL [Concomitant]
     Indication: PSYCHOTIC DISORDER
  4. OMEPRAZOLE [Concomitant]
     Indication: GASTROOESOPHAGEAL REFLUX DISEASE
  5. METOPROLOL TARTRATE [Concomitant]
     Indication: BLOOD PRESSURE
  6. TEGRETOL [Concomitant]
     Indication: AFFECTIVE DISORDER
  7. LIPITOR [Concomitant]
     Indication: CARDIAC DISORDER
  8. NIACIN [Concomitant]
     Indication: BLOOD CHOLESTEROL

REACTIONS (1)
  - RASH [None]
